FAERS Safety Report 12266516 (Version 1)
Quarter: 2016Q2

REPORT INFORMATION
  Report Type: Spontaneous
  Country: VN (occurrence: VN)
  Receive Date: 20160414
  Receipt Date: 20160414
  Transmission Date: 20160815
  Serious: Yes (Death)
  Sender: FDA-Public Use
  Company Number: VN-009507513-1604VNM007980

PATIENT
  Age: 88 Year
  Sex: Female

DRUGS (1)
  1. COZAAR [Suspect]
     Active Substance: LOSARTAN POTASSIUM
     Dosage: STRENGTH: 50 (UNIT UNSPECIFIED), 1 TABLET, ONCE A DAY
     Route: 048
     Dates: start: 20160125, end: 2016

REACTIONS (1)
  - Disease complication [Fatal]

NARRATIVE: CASE EVENT DATE: 2016
